FAERS Safety Report 10345623 (Version 1)
Quarter: 2014Q3

REPORT INFORMATION
  Report Type: Spontaneous
  Country: FR (occurrence: FR)
  Receive Date: 20140728
  Receipt Date: 20140728
  Transmission Date: 20150326
  Serious: Yes (Life-Threatening, Other)
  Sender: FDA-Public Use
  Company Number: FR-GILEAD-2014-0109865

PATIENT
  Age: 66 Year
  Sex: Male

DRUGS (14)
  1. KALETRA [Suspect]
     Active Substance: LOPINAVIR\RITONAVIR
     Dosage: UNK
     Dates: start: 20140618
  2. PARACETAMOL [Concomitant]
     Active Substance: ACETAMINOPHEN
  3. FUROSEMIDE. [Concomitant]
     Active Substance: FUROSEMIDE
     Dosage: UNK
     Dates: start: 20140521, end: 20140528
  4. SPIRAMYCINE [Concomitant]
     Active Substance: SPIRAMYCIN
     Dosage: UNK
     Dates: start: 20140520, end: 20140520
  5. INSULIN [Concomitant]
     Active Substance: INSULIN NOS
     Dosage: UNK
     Dates: start: 20140521, end: 20140702
  6. KALETRA [Suspect]
     Active Substance: LOPINAVIR\RITONAVIR
     Indication: HIV INFECTION
     Dosage: 4 DF, QD
     Route: 048
     Dates: start: 20140523, end: 20140525
  7. ASPIRINE [Concomitant]
     Active Substance: ASPIRIN
     Dosage: UNK
     Dates: start: 20140522
  8. GENTAMICINE [Concomitant]
     Active Substance: GENTAMICIN
     Dosage: UNK
     Dates: start: 20140524, end: 20140528
  9. TAZOCILLINE [Concomitant]
     Active Substance: PIPERACILLIN SODIUM\TAZOBACTAM SODIUM
     Dosage: UNK
     Dates: start: 20140520, end: 20140530
  10. BACTRIM [Concomitant]
     Active Substance: SULFAMETHOXAZOLE\TRIMETHOPRIM
  11. TRUVADA [Suspect]
     Active Substance: EMTRICITABINE\TENOFOVIR DISOPROXIL FUMARATE
     Indication: HIV INFECTION
     Dosage: 1 DF, QD
     Route: 048
     Dates: start: 20140523, end: 20140525
  12. ESOMEPRAZOLE [Concomitant]
     Active Substance: ESOMEPRAZOLE
     Dosage: UNK
     Dates: start: 20140524, end: 20140702
  13. AMIKLIN                            /00391002/ [Concomitant]
  14. ROVAMYCINE                         /00074401/ [Concomitant]
     Active Substance: SPIRAMYCIN

REACTIONS (2)
  - Hyperlactacidaemia [Recovered/Resolved]
  - Cardiogenic shock [Recovered/Resolved]

NARRATIVE: CASE EVENT DATE: 20140524
